FAERS Safety Report 4393578-8 (Version None)
Quarter: 2004Q3

REPORT INFORMATION
  Report Type: 
  Country: None (occurrence: None)
  Receive Date: 20040706
  Receipt Date: 20040706
  Transmission Date: 20050211
  Serious: Yes (Hospitalization)
  Sender: FDA-Public Use
  Company Number: None

PATIENT
  Age: 60 Year
  Sex: Male
  Weight: 111.36 kg

DRUGS (3)
  1. LITHIUM 300 MG CAPSULES [Suspect]
     Dosage: 600 MG QAM AND 900 MG Q HS
     Dates: start: 20031030
  2. FOSINOPRIL SODIUM [Suspect]
     Dosage: 10MG QD
  3. DILTIAZEM [Suspect]
     Dosage: 180MG PO BID

REACTIONS (3)
  - BRADYCARDIA [None]
  - LETHARGY [None]
  - THERAPEUTIC AGENT TOXICITY [None]
